FAERS Safety Report 25531056 (Version 2)
Quarter: 2025Q3

REPORT INFORMATION
  Report Type: Report from Study
  Country: US (occurrence: US)
  Receive Date: 20250708
  Receipt Date: 20250903
  Transmission Date: 20251021
  Serious: Yes (Other)
  Sender: TAKEDA
  Company Number: US-TAKEDA-US201936151

PATIENT
  Age: 72 Year
  Sex: Female
  Weight: 82 kg

DRUGS (13)
  1. HUMAN IMMUNOGLOBULIN G [Suspect]
     Active Substance: HUMAN IMMUNOGLOBULIN G
     Indication: Primary immunodeficiency syndrome
     Dosage: 10 GRAM, 1/WEEK
  2. HUMAN IMMUNOGLOBULIN G [Suspect]
     Active Substance: HUMAN IMMUNOGLOBULIN G
     Indication: Immunodeficiency common variable
  3. BENADRYL [Suspect]
     Active Substance: DIPHENHYDRAMINE HYDROCHLORIDE
     Indication: Product used for unknown indication
  4. EVUSHELD [Suspect]
     Active Substance: CILGAVIMAB\TIXAGEVIMAB
     Indication: COVID-19 immunisation
  5. DIPHENHYDRAMINE [Concomitant]
     Active Substance: DIPHENHYDRAMINE
     Indication: Product used for unknown indication
  6. EPINEPHRINE [Concomitant]
     Active Substance: EPINEPHRINE
     Indication: Product used for unknown indication
  7. ASPIRIN [Concomitant]
     Active Substance: ASPIRIN
     Indication: Product used for unknown indication
  8. CRANBERRY [Concomitant]
     Active Substance: CRANBERRY
     Indication: Product used for unknown indication
  9. FOSAMAX [Concomitant]
     Active Substance: ALENDRONATE SODIUM
     Indication: Product used for unknown indication
  10. MINERALS\VITAMINS [Concomitant]
     Active Substance: MINERALS\VITAMINS
     Indication: Product used for unknown indication
  11. VITAMIN D [Concomitant]
     Active Substance: VITAMIN D NOS
  12. DIPHENHYDRAMINE HYDROCHLORIDE [Concomitant]
     Active Substance: DIPHENHYDRAMINE HYDROCHLORIDE
  13. VITAMIN D3 [Concomitant]
     Active Substance: CHOLECALCIFEROL

REACTIONS (37)
  - Compression fracture [Unknown]
  - Sinusitis [Recovered/Resolved]
  - Illness [Unknown]
  - Viral infection [Unknown]
  - Skin burning sensation [Unknown]
  - Fall [Recovering/Resolving]
  - Limb injury [Recovering/Resolving]
  - Ligament sprain [Recovering/Resolving]
  - Foreign body in skin or subcutaneous tissue [Unknown]
  - Blood immunoglobulin G increased [Unknown]
  - Tooth fracture [Unknown]
  - Tooth infection [Recovered/Resolved]
  - Antibody test positive [Unknown]
  - Tooth abscess [Unknown]
  - Skin papilloma [Unknown]
  - Food allergy [Recovered/Resolved]
  - Bladder disorder [Recovered/Resolved]
  - Nasal injury [Recovering/Resolving]
  - Skin laceration [Recovering/Resolving]
  - Urinary tract infection [Unknown]
  - Infusion site rash [Unknown]
  - Musculoskeletal discomfort [Unknown]
  - Limb discomfort [Unknown]
  - Muscle spasms [Unknown]
  - Conjunctivitis [Unknown]
  - Infusion site erythema [Unknown]
  - Pain [Recovering/Resolving]
  - Infusion site pruritus [Unknown]
  - Pain in extremity [Unknown]
  - Malaise [Recovering/Resolving]
  - Cough [Recovering/Resolving]
  - Infusion site pain [Unknown]
  - Diarrhoea [Recovered/Resolved]
  - Myalgia [Unknown]
  - Headache [Recovering/Resolving]
  - Fatigue [Recovering/Resolving]
  - Nausea [Unknown]

NARRATIVE: CASE EVENT DATE: 20230103
